FAERS Safety Report 20120624 (Version 2)
Quarter: 2021Q4

REPORT INFORMATION
  Report Type: Spontaneous
  Country: US (occurrence: US)
  Receive Date: 20211126
  Receipt Date: 20211130
  Transmission Date: 20220303
  Serious: Yes (Other)
  Sender: FDA-Public Use
  Company Number: US-SANOFI-00864019

PATIENT
  Sex: Female

DRUGS (1)
  1. TOUJEO MAX [Suspect]
     Active Substance: INSULIN GLARGINE
     Dosage: 4 UNITS TO 80 UNITS TWICE A DAY, Q12H
     Route: 065

REACTIONS (2)
  - Diabetes mellitus inadequate control [Unknown]
  - Inappropriate schedule of product administration [Unknown]
